FAERS Safety Report 4724440-6 (Version None)
Quarter: 2005Q3

REPORT INFORMATION
  Report Type: 
  Country: None (occurrence: None)
  Receive Date: 20050721
  Receipt Date: 20050706
  Transmission Date: 20060218
  Serious: Yes (Other)
  Sender: FDA-Public Use
  Company Number: 2005102529

PATIENT
  Sex: Male
  Weight: 75 kg

DRUGS (2)
  1. LYRICA [Suspect]
     Indication: NEURALGIA
     Dosage: 150 MG (75 MG, 2 IN 1 D), ORAL
     Route: 048
     Dates: start: 20050413, end: 20050414
  2. VENDAL (MORPHINE HYDROCHLORIDE) [Suspect]
     Indication: NEURALGIA
     Dosage: 60 MG (30 MG, 2 IN 1D), ORAL
     Route: 048
     Dates: start: 20050415, end: 20050415

REACTIONS (8)
  - COMA [None]
  - DIET REFUSAL [None]
  - GENERAL NUTRITION DISORDER [None]
  - HALLUCINATION [None]
  - HYPOTENSION [None]
  - PARANOIA [None]
  - PERSECUTORY DELUSION [None]
  - QUADRIPLEGIA [None]
